FAERS Safety Report 9202805 (Version 1)
Quarter: 2013Q2

REPORT INFORMATION
  Report Type: Spontaneous
  Country: US (occurrence: US)
  Receive Date: 20130401
  Receipt Date: 20130401
  Transmission Date: 20140414
  Serious: Yes (Other)
  Sender: FDA-Public Use
  Company Number: CHPA2013US005350

PATIENT
  Age: 69 Year
  Sex: Female

DRUGS (12)
  1. EXCEDRIN EXTRA STRENGTH [Suspect]
     Indication: HEADACHE
     Dosage: 2 CAPLETS, PRN
     Route: 048
     Dates: start: 1960
  2. EXCEDRIN EXTRA STRENGTH [Suspect]
     Indication: MYALGIA
  3. EXCEDRIN ES BACK + BODY [Suspect]
     Dosage: 2 CAPLETS, PRN
     Route: 048
     Dates: start: 2007
  4. BUTRANS//BUPRENORPHINE [Concomitant]
     Indication: BACK PAIN
  5. BUTRANS//BUPRENORPHINE [Concomitant]
     Indication: ARTHRALGIA
  6. EXFORGE [Concomitant]
     Dosage: 10/320/25MG, QD
     Dates: start: 2010
  7. TRAMADOL [Concomitant]
     Indication: FIBROMYALGIA
     Dosage: 1 TABLET, Q6H
     Dates: start: 201112
  8. TRAMADOL [Concomitant]
     Indication: SYSTEMIC LUPUS ERYTHEMATOSUS
  9. LYRICA [Concomitant]
     Dosage: 50 MG, BID
  10. LYRICA [Concomitant]
     Dosage: UNK, UNK
  11. VICODIN [Concomitant]
  12. OXYCODONE [Concomitant]

REACTIONS (8)
  - Renal disorder [Recovered/Resolved]
  - Loss of consciousness [Recovered/Resolved]
  - Insomnia [Recovered/Resolved]
  - Road traffic accident [Recovered/Resolved]
  - Anxiety [Recovered/Resolved]
  - Feeling abnormal [Recovered/Resolved]
  - Somnolence [Recovered/Resolved]
  - Incorrect dose administered [Unknown]
